FAERS Safety Report 8926446 (Version 2)
Quarter: 2013Q1

REPORT INFORMATION
  Report Type: Spontaneous
  Country: US (occurrence: US)
  Receive Date: 20121126
  Receipt Date: 20130325
  Transmission Date: 20140127
  Serious: Yes (Other)
  Sender: FDA-Public Use
  Company Number: US-JNJFOC-20121110402

PATIENT
  Sex: Female

DRUGS (21)
  1. XARELTO [Suspect]
     Indication: CEREBROVASCULAR ACCIDENT PROPHYLAXIS
     Route: 048
     Dates: start: 20120215, end: 20121002
  2. XARELTO [Suspect]
     Indication: ATRIAL FIBRILLATION
     Route: 048
     Dates: start: 20120215, end: 20121002
  3. CALCIUM CARBONATE / CHOLECALCIFEROL [Concomitant]
     Dosage: LAST DOSE 17-SEP-2012
     Route: 048
  4. ALBUTEROL [Concomitant]
     Dosage: EVERY 4 TO 6 HOURS AS NEEDED, LAST DOSE 11-SEP-2012
     Route: 055
  5. ALPRAZOLAM [Concomitant]
     Dosage: 1 TABLET TWICE DAILY AS NEEDED. LAST DOSE 17-SEP-2012.
     Route: 048
  6. ASPIRIN [Concomitant]
     Dosage: 1 TABLET ONCE DAILY. LAST DOSE 17-SEP-2012
     Route: 048
  7. CHOLECALCIFEROL [Concomitant]
     Dosage: 50,000 UNIT CAPSULE, 1 CAPSULE AS DIRECTED. LAST DOSE 17-SEP-2012 AT 8:00 A.M
     Route: 048
  8. EPIPEN [Concomitant]
     Dosage: AS NEEDED
     Route: 030
  9. ERYTHROMYCIN [Concomitant]
     Dosage: LAST DOSE AT 17-SEP-2012 AT 8.00 A.M
     Route: 065
  10. PREMARIN [Concomitant]
     Dosage: SIX DAYS A WEEK, NOT ON SUNDAY. LAST DOSE: 17-SEP-2012
     Route: 048
  11. ADVAIR DISKUS [Concomitant]
     Dosage: 250-50 MCG/DOSE DISK WITH DEVICE, 1 INHALATION BY MOUTH ONCE DAILY RINSE MOUTH AFTER USE
     Route: 048
  12. FUROSEMIDE [Concomitant]
     Dosage: DAILY IN THE MORNING. LAST DOSE 17-SEP-2012
     Route: 048
  13. COMBIVENT [Concomitant]
     Dosage: 18-103 MCG/ACTUATION AEROSOL, 2 PUFFS BY MOUTH EVERY SIX HOURS AS NEEDED. LAST DOSE 17-SEP-2012
     Route: 048
  14. METOPROLOL SUCCINATE [Concomitant]
     Dosage: SUSTAINED RELEASE 24 HOURS. LAST DOSE 17-SEP-2012
     Route: 048
  15. MULTIVITAMINS [Concomitant]
     Dosage: 1 TBLET. LAST DOSE ON 17-SEP-2012 AT 8 A.M
     Route: 048
  16. NITROGLYCERIN [Concomitant]
     Dosage: AS DIRECTED. MAY REPEAT EVERY 5 MINUTES 2, IF PAIN PERSISTS PRESENT TO EMERGENCY DEPARTMENT.
     Route: 060
  17. OMEPRAZOLE [Concomitant]
     Dosage: LAST DOSE 17-SEP-2012
     Route: 048
  18. PROCHLORPERAZINE MALEATE [Concomitant]
     Dosage: AS NEEDED
     Route: 065
  19. PROMETHAZINE CODEINE [Concomitant]
     Indication: COUGH
     Dosage: 6.25-10 MG/5ML SYRUP, AS NEEDED FOR COUGH
     Route: 048
  20. TRIAZOLAM [Concomitant]
     Dosage: AT BED TIME. LAST DOSE ON 17-SEP-2012 AT 8.00 A.M
     Route: 048
  21. ACETAMINOPHEN [Concomitant]
     Dosage: 2 CAPSULES ORALLY EVERY 4 TO 6 HOURS AS NEEDED, LAST DOSE AT 17-SEP-2012 AT 7.00 PM
     Route: 048

REACTIONS (8)
  - Liver function test abnormal [Recovered/Resolved]
  - Hepatic steatosis [Unknown]
  - Dyspnoea [Unknown]
  - Alanine aminotransferase increased [Unknown]
  - Adverse event [Recovering/Resolving]
  - Aspartate aminotransferase increased [Unknown]
  - Chest pain [Unknown]
  - Cholelithiasis [Unknown]
